FAERS Safety Report 5506690-4 (Version None)
Quarter: 2007Q4

REPORT INFORMATION
  Report Type: 
  Country: None (occurrence: None)
  Receive Date: 20071105
  Receipt Date: 20071102
  Transmission Date: 20080405
  Serious: Yes (Hospitalization)
  Sender: FDA-Public Use
  Company Number: US-BRISTOL-MYERS SQUIBB COMPANY-13967955

PATIENT
  Age: 62 Year
  Sex: Female

DRUGS (1)
  1. TEQUIN [Suspect]
     Indication: UPPER RESPIRATORY TRACT INFECTION
     Dates: start: 20060414

REACTIONS (1)
  - DIABETIC KETOACIDOSIS [None]
